FAERS Safety Report 23643119 (Version 2)
Quarter: 2024Q1

REPORT INFORMATION
  Report Type: Spontaneous
  Country: CA (occurrence: CA)
  Receive Date: 20240318
  Receipt Date: 20240322
  Transmission Date: 20240409
  Serious: Yes (Hospitalization)
  Sender: FDA-Public Use
  Company Number: CA-PFIZER INC-PV202400035451

PATIENT
  Age: 60 Year
  Sex: Male

DRUGS (2)
  1. MEKTOVI [Suspect]
     Active Substance: BINIMETINIB
     Dosage: UNK
     Dates: start: 20240202
  2. BRAFTOVI [Concomitant]
     Active Substance: ENCORAFENIB
     Dosage: UNK

REACTIONS (1)
  - Illness [Unknown]
